FAERS Safety Report 14108208 (Version 1)
Quarter: 2017Q4

REPORT INFORMATION
  Report Type: Spontaneous
  Country: BG (occurrence: BG)
  Receive Date: 20171019
  Receipt Date: 20171019
  Transmission Date: 20180321
  Serious: Yes (Other)
  Sender: FDA-Public Use
  Company Number: BG-TEVA-815882ROM

PATIENT
  Age: 16 Year
  Sex: Female

DRUGS (1)
  1. CLOBETASOL [Suspect]
     Active Substance: CLOBETASOL
     Indication: DYSHIDROTIC ECZEMA
     Route: 061

REACTIONS (1)
  - Staphylococcal infection [Recovering/Resolving]
